FAERS Safety Report 4658658-8 (Version None)
Quarter: 2005Q2

REPORT INFORMATION
  Report Type: 
  Country: None (occurrence: None)
  Receive Date: 20050510
  Receipt Date: 20050510
  Transmission Date: 20051028
  Serious: Yes (Life-Threatening)
  Sender: FDA-Public Use
  Company Number: None

PATIENT
  Age: 19 Year
  Sex: Female

DRUGS (3)
  1. ZOLOFT [Suspect]
     Indication: DEPRESSION
     Dosage: 100 MG   QD    ORAL
     Route: 048
  2. LISINOPRIL [Concomitant]
  3. TYLENOL (CAPLET) [Concomitant]

REACTIONS (3)
  - DRUG TOXICITY [None]
  - HEPATIC ENZYME INCREASED [None]
  - SUICIDE ATTEMPT [None]
